FAERS Safety Report 9292268 (Version 1)
Quarter: 2013Q2

REPORT INFORMATION
  Report Type: Spontaneous
  Country: US (occurrence: None)
  Receive Date: 20130515
  Receipt Date: 20130515
  Transmission Date: 20140414
  Serious: Yes (Death)
  Sender: FDA-Public Use
  Company Number: None

PATIENT
  Age: 26 Year
  Sex: Male
  Weight: 85 kg

DRUGS (1)
  1. ORLISTAT [Suspect]
     Indication: WEIGHT CONTROL
     Dosage: 1 CAPSULE  THREE TIMES A DAY PO
     Route: 048
     Dates: start: 20130511, end: 20130513

REACTIONS (9)
  - Pancreatitis acute [None]
  - Fall [None]
  - Pulseless electrical activity [None]
  - Pancreatitis necrotising [None]
  - Multi-organ failure [None]
  - Coagulopathy [None]
  - Shock [None]
  - Lactic acidosis [None]
  - Cardio-respiratory arrest [None]
